FAERS Safety Report 7653645-X (Version None)
Quarter: 2011Q3

REPORT INFORMATION
  Report Type: 
  Country: None (occurrence: None)
  Receive Date: 20110803
  Receipt Date: 20110803
  Transmission Date: 20111222
  Serious: Yes (Other)
  Sender: FDA-Public Use
  Company Number: None

PATIENT
  Age: 20 Year
  Sex: Female
  Weight: 63.502 kg

DRUGS (1)
  1. ABILIFY [Suspect]
     Indication: BIPOLAR DISORDER
     Dosage: 5 MG- HALF A PILL
     Dates: start: 20110624, end: 20110722

REACTIONS (4)
  - EXCESSIVE EYE BLINKING [None]
  - TREMOR [None]
  - TOOTH FRACTURE [None]
  - DYSKINESIA [None]
